FAERS Safety Report 7795330-X (Version None)
Quarter: 2011Q4

REPORT INFORMATION
  Report Type: 
  Country: None (occurrence: None)
  Receive Date: 20111004
  Receipt Date: 20111003
  Transmission Date: 20120403
  Serious: Yes (Hospitalization)
  Sender: FDA-Public Use
  Company Number: PHHY2011NL71543

PATIENT
  Sex: Male

DRUGS (6)
  1. ZOMETA [Suspect]
     Indication: PROSTATE CANCER METASTATIC
     Dosage: 4 MG, PER 5 ML ONCE PER 28 DAYS
     Dates: start: 20101130
  2. CHEMOTHERAPEUTICS NOS [Concomitant]
     Dates: start: 20110805
  3. ZOMETA [Suspect]
     Dosage: 350 ML PER HR
  4. ZOMETA [Suspect]
     Dosage: 4 MG, PER 5 ML
     Dates: start: 20110712
  5. ZOMETA [Suspect]
     Dosage: 4 MG, PER 5 ML
     Dates: start: 20110809
  6. CHEMOTHERAPEUTICS NOS [Concomitant]

REACTIONS (10)
  - ABDOMINAL INFECTION [None]
  - DEHYDRATION [None]
  - ABDOMINAL PAIN [None]
  - FLATULENCE [None]
  - MALAISE [None]
  - GENERAL PHYSICAL HEALTH DETERIORATION [None]
  - HYPOPHAGIA [None]
  - ABDOMINAL DISTENSION [None]
  - DIARRHOEA [None]
  - LEGIONELLA INFECTION [None]
